FAERS Safety Report 16851983 (Version 1)
Quarter: 2019Q3

REPORT INFORMATION
  Report Type: Spontaneous
  Country: US (occurrence: US)
  Receive Date: 20190925
  Receipt Date: 20190925
  Transmission Date: 20191005
  Serious: No
  Sender: FDA-Public Use
  Company Number: US-NEPHRON STERILE COMPOUNDING CENTER-2074902

PATIENT
  Age: 60 Year
  Sex: Female
  Weight: 82.8 kg

DRUGS (5)
  1. ROCURONIUM BROMIDE. [Suspect]
     Active Substance: ROCURONIUM BROMIDE
     Indication: ENDOTRACHEAL INTUBATION
     Route: 040
     Dates: start: 20190905, end: 20190905
  2. FENTANYL. [Concomitant]
     Active Substance: FENTANYL
     Route: 040
     Dates: start: 20190905, end: 20190905
  3. MIDAZOLAM [Concomitant]
     Active Substance: MIDAZOLAM HYDROCHLORIDE
     Route: 040
     Dates: start: 20190905, end: 20190905
  4. CLINDAMYCIN. [Concomitant]
     Active Substance: CLINDAMYCIN
     Route: 040
     Dates: start: 20190905, end: 20190905
  5. PROPOFOL. [Concomitant]
     Active Substance: PROPOFOL
     Route: 040
     Dates: start: 20190905, end: 20190905

REACTIONS (1)
  - Drug ineffective [Recovered/Resolved]

NARRATIVE: CASE EVENT DATE: 20190905
